FAERS Safety Report 5722823-9 (Version None)
Quarter: 2008Q2

REPORT INFORMATION
  Report Type: 
  Country: None (occurrence: None)
  Receive Date: 20080429
  Receipt Date: 20080220
  Transmission Date: 20081010
  Serious: No
  Sender: FDA-Public Use
  Company Number: US-ASTRAZENECA-2008UW01442

PATIENT
  Age: 49 Year
  Sex: Female
  Weight: 50.8 kg

DRUGS (2)
  1. NEXIUM [Suspect]
     Indication: DYSPEPSIA
     Route: 048
     Dates: start: 20080112
  2. XANAX [Concomitant]

REACTIONS (2)
  - DYSPEPSIA [None]
  - RECTAL HAEMORRHAGE [None]
